FAERS Safety Report 8065652-6 (Version None)
Quarter: 2012Q1

REPORT INFORMATION
  Report Type: 
  Country: None (occurrence: None)
  Receive Date: 20120124
  Receipt Date: 20120111
  Transmission Date: 20120608
  Serious: Yes (Hospitalization, Other)
  Sender: FDA-Public Use
  Company Number: MX-SANOFI-AVENTIS-2012SA002260

PATIENT
  Age: 77 Year
  Sex: Female

DRUGS (7)
  1. PLAVIX [Suspect]
     Route: 048
     Dates: start: 20110910
  2. PLAVIX [Suspect]
     Route: 048
     Dates: start: 20050101, end: 20110901
  3. AVALIDE [Concomitant]
     Route: 048
     Dates: start: 20100101, end: 20111227
  4. VOLTAREN [Suspect]
     Route: 048
     Dates: start: 20110818, end: 20110905
  5. LANTUS [Suspect]
     Indication: TYPE 2 DIABETES MELLITUS
     Route: 058
     Dates: start: 20070101
  6. PLAVIX [Suspect]
     Indication: THROMBOSIS PROPHYLAXIS
     Route: 048
     Dates: start: 20050101, end: 20110901
  7. PLAVIX [Suspect]
     Route: 048
     Dates: start: 20110910

REACTIONS (7)
  - FALL [None]
  - TRANSIENT ISCHAEMIC ATTACK [None]
  - DUODENAL ULCER [None]
  - INTERVERTEBRAL DISC PROTRUSION [None]
  - HYPERTENSIVE CRISIS [None]
  - HIP FRACTURE [None]
  - UPPER GASTROINTESTINAL HAEMORRHAGE [None]
